FAERS Safety Report 9878773 (Version 1)
Quarter: 2014Q1

REPORT INFORMATION
  Report Type: Spontaneous
  Country: US (occurrence: US)
  Receive Date: 20140206
  Receipt Date: 20140206
  Transmission Date: 20141002
  Serious: Yes (Other)
  Sender: FDA-Public Use
  Company Number: US-GLAXOSMITHKLINE-A1059273A

PATIENT
  Sex: Male

DRUGS (2)
  1. WELLBUTRIN SR [Suspect]
     Indication: EX-TOBACCO USER
     Route: 065
  2. UNKNOWN [Concomitant]

REACTIONS (2)
  - Convulsion [Not Recovered/Not Resolved]
  - Craniocerebral injury [Unknown]
